FAERS Safety Report 8200770-0 (Version None)
Quarter: 2012Q1

REPORT INFORMATION
  Report Type: 
  Country: None (occurrence: None)
  Receive Date: 20120302
  Receipt Date: 20120221
  Transmission Date: 20120608
  Serious: Yes (Hospitalization)
  Sender: FDA-Public Use
  Company Number: 2012031414

PATIENT
  Age: 53 Year
  Sex: Male

DRUGS (1)
  1. PRIVIGEN [Suspect]
     Indication: MULTIFOCAL MOTOR NEUROPATHY
     Dosage: 30 G QD  INTRAVENOUS (NOT OTHERWISE SPECIFIED)
     Route: 042
     Dates: start: 20120130, end: 20120201

REACTIONS (2)
  - OFF LABEL USE [None]
  - DEEP VEIN THROMBOSIS [None]
